FAERS Safety Report 17519836 (Version 1)
Quarter: 2020Q1

REPORT INFORMATION
  Report Type: Spontaneous
  Country: US (occurrence: US)
  Receive Date: 20200226
  Receipt Date: 20200226
  Transmission Date: 20200409
  Serious: Yes (Hospitalization)
  Sender: FDA-Public Use
  Company Number: None

PATIENT
  Age: 51 Year
  Sex: Female
  Weight: 77.7 kg

DRUGS (2)
  1. ABIRATERONE ACETATE. [Suspect]
     Active Substance: ABIRATERONE ACETATE
     Dates: end: 20200223
  2. PREDNISONE. [Suspect]
     Active Substance: PREDNISONE
     Dates: end: 20200223

REACTIONS (5)
  - Hypoaesthesia [None]
  - Pain [None]
  - Paraesthesia [None]
  - Back pain [None]
  - Haemoglobin decreased [None]

NARRATIVE: CASE EVENT DATE: 20200224
